FAERS Safety Report 7883520-7 (Version None)
Quarter: 2011Q4

REPORT INFORMATION
  Report Type: 
  Country: None (occurrence: None)
  Receive Date: 20111102
  Receipt Date: 20111027
  Transmission Date: 20120403
  Serious: Yes (Other)
  Sender: FDA-Public Use
  Company Number: DE-ASTELLAS-2011EU007629

PATIENT
  Sex: Female

DRUGS (4)
  1. VESICARE [Suspect]
     Indication: HYPERTONIC BLADDER
     Dosage: UNK
     Route: 048
     Dates: start: 20110201, end: 20111021
  2. HYDROCHLOROTHIAZIDE [Concomitant]
     Dosage: UNK
     Route: 065
  3. EPROSARTAN [Concomitant]
     Dosage: UNK
     Route: 065
     Dates: start: 20110801
  4. BISOPROLOL [Concomitant]
     Dosage: UNK
     Route: 065

REACTIONS (7)
  - NAUSEA [None]
  - DYSPNOEA [None]
  - VISUAL ACUITY REDUCED [None]
  - ABDOMINAL PAIN [None]
  - HEADACHE [None]
  - FATIGUE [None]
  - EMPHYSEMA [None]
